FAERS Safety Report 5187938-5 (Version None)
Quarter: 2006Q4

REPORT INFORMATION
  Report Type: 
  Country: None (occurrence: None)
  Receive Date: 20061221
  Receipt Date: 20061207
  Transmission Date: 20070319
  Serious: Yes (Disabling)
  Sender: FDA-Public Use
  Company Number: 2006GB02241

PATIENT
  Age: 43 Year
  Sex: Female
  Weight: 76 kg

DRUGS (3)
  1. ZOLADEX [Suspect]
     Indication: ENDOMETRIOSIS
     Route: 058
     Dates: start: 20060818, end: 20061110
  2. AMITRIPTYLINE HCL [Concomitant]
     Indication: BACK PAIN
     Route: 048
  3. CO-DYDRAMOL [Concomitant]
     Indication: BACK PAIN
     Route: 048

REACTIONS (2)
  - NIGHT BLINDNESS [None]
  - VISUAL ACUITY REDUCED [None]
